FAERS Safety Report 4750226-2 (Version None)
Quarter: 2005Q3

REPORT INFORMATION
  Report Type: 
  Country: None (occurrence: None)
  Receive Date: 20050818
  Receipt Date: 20050801
  Transmission Date: 20060218
  Serious: Yes (Life-Threatening, Hospitalization, Disabling)
  Sender: FDA-Public Use
  Company Number: M03-INT-119

PATIENT
  Age: 76 Year
  Sex: Female
  Weight: 80 kg

DRUGS (9)
  1. INTEGRILIN [Suspect]
     Indication: ACUTE CORONARY SYNDROME
     Dosage: SEE IMAGE
     Route: 042
     Dates: start: 20031111, end: 20031111
  2. ACETYLSALICYLIC ACID SRT [Suspect]
     Dosage: 81 MG, ORAL
     Route: 048
  3. PLAVIX [Suspect]
     Dosage: ORAL
     Route: 048
     Dates: start: 20031111
  4. HEPARIN [Suspect]
     Dosage: INTRAVENOUS
     Route: 042
  5. LISINOPRIL TABLET [Concomitant]
  6. DILTIAZEM [Concomitant]
  7. HYDROCHLOROTHIAZIDE TABLET [Concomitant]
  8. LIPITOR [Concomitant]
  9. GLIPIZIDE [Concomitant]

REACTIONS (18)
  - ACTIVATED PARTIAL THROMBOPLASTIN TIME PROLONGED [None]
  - BLOOD GLUCOSE INCREASED [None]
  - BLOOD MAGNESIUM INCREASED [None]
  - BLOOD SODIUM DECREASED [None]
  - BODY TEMPERATURE INCREASED [None]
  - CEREBRAL HAEMORRHAGE [None]
  - CONFUSIONAL STATE [None]
  - ELECTROCARDIOGRAM T WAVE INVERSION [None]
  - GLUCOSE URINE PRESENT [None]
  - PARAPLEGIA [None]
  - PROTHROMBIN TIME PROLONGED [None]
  - PROTHROMBIN TIME SHORTENED [None]
  - SPINAL CORD DISORDER [None]
  - SPINAL CORD OEDEMA [None]
  - SUBDURAL HAEMORRHAGE [None]
  - URINE KETONE BODY PRESENT [None]
  - URINE LEUKOCYTE ESTERASE POSITIVE [None]
  - VENTRICULAR HYPERTROPHY [None]
